FAERS Safety Report 9510479 (Version 2)
Quarter: 2013Q3

REPORT INFORMATION
  Report Type: Report from Study
  Country: NL (occurrence: NL)
  Receive Date: 20130909
  Receipt Date: 20130920
  Transmission Date: 20140515
  Serious: Yes (Death)
  Sender: FDA-Public Use
  Company Number: NL-TAKEDA-2013TJP000062

PATIENT
  Sex: 0

DRUGS (1)
  1. LEUPRORELIN [Suspect]
     Indication: PROSTATE CANCER
     Dosage: 11.25 MG, Q3MONTHS
     Route: 058
     Dates: start: 20101221

REACTIONS (1)
  - Death [Fatal]
